FAERS Safety Report 14872477 (Version 2)
Quarter: 2018Q2

REPORT INFORMATION
  Report Type: Spontaneous
  Country: US (occurrence: US)
  Receive Date: 20180510
  Receipt Date: 20180515
  Transmission Date: 20180711
  Serious: No
  Sender: FDA-Public Use
  Company Number: US-CELGENEUS-USA-20180500374

PATIENT
  Age: 49 Year
  Sex: Female

DRUGS (1)
  1. OTEZLA [Suspect]
     Active Substance: APREMILAST
     Indication: PSORIASIS
     Dosage: 60 MILLIGRAM
     Route: 048
     Dates: start: 201801

REACTIONS (5)
  - Psoriasis [Unknown]
  - Weight decreased [Unknown]
  - Drug effect decreased [Unknown]
  - Decreased appetite [Unknown]
  - Influenza [Unknown]

NARRATIVE: CASE EVENT DATE: 201802
